FAERS Safety Report 10022166 (Version 1)
Quarter: 2014Q1

REPORT INFORMATION
  Report Type: Spontaneous
  Country: CH (occurrence: CH)
  Receive Date: 20140319
  Receipt Date: 20140319
  Transmission Date: 20141002
  Serious: Yes (Death)
  Sender: FDA-Public Use
  Company Number: PHHY2014CH030541

PATIENT
  Age: 79 Year
  Sex: Male
  Weight: 84.9 kg

DRUGS (15)
  1. CEFEPIME [Suspect]
     Indication: PLEURAL INFECTION
     Dosage: 0.5 G, QD
     Route: 042
     Dates: start: 20130920, end: 20130924
  2. DAFALGAN [Suspect]
     Indication: MUSCULOSKELETAL PAIN
     Dosage: 1000 MG, TID
     Route: 048
     Dates: start: 20130903, end: 20130929
  3. NEXIUM [Suspect]
     Indication: GASTROOESOPHAGEAL REFLUX PROPHYLAXIS
     Dosage: 20 MG, QD
     Route: 048
     Dates: start: 2010, end: 20130929
  4. ZYLORIC [Suspect]
     Indication: GOUT
     Dosage: 50 MG, QD
     Route: 048
     Dates: start: 2012, end: 20130929
  5. BELOC [Suspect]
     Indication: CARDIOMYOPATHY
     Dosage: 75 MG, QD
     Route: 048
     Dates: start: 2010, end: 20130929
  6. PREDNISONE [Suspect]
     Indication: GOUT
     Dosage: 12.5 MG, QD
     Route: 048
     Dates: start: 2005, end: 20130929
  7. FLAGYL [Suspect]
     Indication: CLOSTRIDIUM DIFFICILE INFECTION
     Dosage: 500 MG, TID
     Route: 048
     Dates: start: 20130909, end: 20130919
  8. COLCHICINE [Suspect]
     Indication: GOUT
     Dosage: 0.5 MG, QD
     Route: 048
     Dates: start: 2012, end: 20130919
  9. VANCOMYCIN [Concomitant]
     Indication: LUNG INFECTION
     Dosage: 500 MG, QD
     Route: 042
     Dates: start: 20130925, end: 20130929
  10. DOSPIR [Concomitant]
     Indication: LUNG INFECTION
     Dosage: 1 DF, TID
     Route: 055
     Dates: start: 20130902, end: 20130929
  11. ARANESP [Concomitant]
     Indication: ANAEMIA OF CHRONIC DISEASE
     Dosage: 62.1 UG, QW2
     Route: 058
     Dates: start: 2012, end: 20130929
  12. XGEVA [Concomitant]
     Indication: METASTASES TO BONE
     Dosage: 120 MG, QW4
     Route: 042
     Dates: start: 20130412, end: 20130929
  13. TEMGESIC [Concomitant]
     Indication: ARTHRALGIA
     Dosage: 0.1 MG, TID
     Route: 042
     Dates: start: 20130921, end: 20130929
  14. PASPERTIN [Concomitant]
     Indication: NAUSEA
     Dosage: 10 MG, TID
     Route: 048
     Dates: start: 20130924, end: 20130929
  15. PRAVASTATIN [Concomitant]
     Indication: HYPERCHOLESTEROLAEMIA
     Dosage: 10 MG, QD
     Route: 048
     Dates: start: 2010, end: 20130929

REACTIONS (1)
  - Pancytopenia [Fatal]
